FAERS Safety Report 12844035 (Version 1)
Quarter: 2016Q4

REPORT INFORMATION
  Report Type: Spontaneous
  Country: GB (occurrence: GB)
  Receive Date: 20161013
  Receipt Date: 20161013
  Transmission Date: 20170207
  Serious: Yes (Other)
  Sender: FDA-Public Use
  Company Number: GB-009507513-1610GBR005293

PATIENT
  Age: 57 Year
  Sex: Male
  Weight: 64 kg

DRUGS (6)
  1. TESTOSTERONE. [Concomitant]
     Active Substance: TESTOSTERONE
     Dosage: 1 DF, QW
     Dates: start: 20160312, end: 20161002
  2. SIMVASTATIN. [Concomitant]
     Active Substance: SIMVASTATIN
     Dosage: 1 DF, QD (AT NIGHT)
     Dates: start: 20150902
  3. SITAGLIPTIN PHOSPHATE [Suspect]
     Active Substance: SITAGLIPTIN PHOSPHATE
     Dosage: UNK
     Route: 048
     Dates: start: 20150902, end: 20161003
  4. METFORMIN [Concomitant]
     Active Substance: METFORMIN HYDROCHLORIDE
     Dosage: 1 DF,ONCE A DAY FOR A WEEK THEN TWICE DAILY.
     Dates: start: 20160212
  5. NIFEDIPINE. [Concomitant]
     Active Substance: NIFEDIPINE
     Dosage: 1 DF, TID
     Dates: start: 20150902
  6. GLICLAZIDE [Concomitant]
     Active Substance: GLICLAZIDE
     Dosage: 1 DF, BID
     Dates: start: 20150902

REACTIONS (2)
  - Pancreatitis [Recovered/Resolved with Sequelae]
  - Pancreatic cyst [Recovered/Resolved with Sequelae]

NARRATIVE: CASE EVENT DATE: 20160606
